FAERS Safety Report 25010228 (Version 5)
Quarter: 2025Q2

REPORT INFORMATION
  Report Type: Report from Study
  Country: CA (occurrence: CA)
  Receive Date: 20250225
  Receipt Date: 20250421
  Transmission Date: 20250717
  Serious: Yes (Hospitalization, Other)
  Sender: CSL BEHRING
  Company Number: CA-BEH-2024186335

PATIENT
  Age: 77 Year
  Sex: Female
  Weight: 93 kg

DRUGS (13)
  1. HIZENTRA [Suspect]
     Active Substance: HUMAN IMMUNOGLOBULIN G
     Indication: Primary immunodeficiency syndrome
     Dosage: 10 G, QW
     Route: 065
     Dates: start: 20240227
  2. HIZENTRA [Suspect]
     Active Substance: HUMAN IMMUNOGLOBULIN G
     Route: 065
     Dates: start: 20250116
  3. HIZENTRA [Suspect]
     Active Substance: HUMAN IMMUNOGLOBULIN G
     Dosage: (STRENGTH 10 G), QW
     Route: 058
     Dates: start: 20240227
  4. HIZENTRA [Suspect]
     Active Substance: HUMAN IMMUNOGLOBULIN G
     Dosage: 10 G, QW (STRENGTH 1-10 G)
     Route: 058
     Dates: start: 20240227
  5. HIZENTRA [Suspect]
     Active Substance: HUMAN IMMUNOGLOBULIN G
     Route: 065
     Dates: start: 20250412
  6. ROSUVASTATIN [Concomitant]
     Active Substance: ROSUVASTATIN
  7. PREGABALIN [Concomitant]
     Active Substance: PREGABALIN
  8. MONTELUKAST [Concomitant]
     Active Substance: MONTELUKAST
  9. MYRBETRIQ [Concomitant]
     Active Substance: MIRABEGRON
  10. PULMICORT TURBUHALER [Concomitant]
     Active Substance: BUDESONIDE
  11. SYMBICORT [Concomitant]
     Active Substance: BUDESONIDE\FORMOTEROL FUMARATE DIHYDRATE
  12. ASPIRIN [Concomitant]
     Active Substance: ASPIRIN
  13. AZITHROMYCIN [Concomitant]
     Active Substance: AZITHROMYCIN

REACTIONS (18)
  - Pneumonia influenzal [Unknown]
  - Pneumonia [Recovered/Resolved]
  - Sepsis [Recovered/Resolved]
  - Influenza [Recovered/Resolved]
  - Sepsis [Unknown]
  - Infusion site erythema [Unknown]
  - Infusion site erythema [Recovered/Resolved]
  - Injection site erythema [Unknown]
  - Injection site erythema [Unknown]
  - Cough [Unknown]
  - Dyspnoea [Unknown]
  - Nasal congestion [Unknown]
  - Fatigue [Unknown]
  - Injection site erythema [Not Recovered/Not Resolved]
  - Injection site swelling [Not Recovered/Not Resolved]
  - Injection site discolouration [Not Recovered/Not Resolved]
  - Therapy interrupted [Unknown]
  - Infusion site erythema [Unknown]

NARRATIVE: CASE EVENT DATE: 20241115
